FAERS Safety Report 10387890 (Version 1)
Quarter: 2014Q3

REPORT INFORMATION
  Report Type: Spontaneous
  Country: NL (occurrence: None)
  Receive Date: 20140813
  Receipt Date: 20140813
  Transmission Date: 20150326
  Serious: Yes (Other)
  Sender: FDA-Public Use
  Company Number: AUR-APL-2014-07396

PATIENT
  Age: 58 Year
  Sex: Male

DRUGS (1)
  1. AMOXICILLIN+CLAVULANIC ACID [Suspect]
     Active Substance: AMOXICILLIN\CLAVULANIC ACID
     Indication: INFLAMMATION OF WOUND
     Dosage: UNKNOWN

REACTIONS (7)
  - Nausea [None]
  - Swelling face [None]
  - Urticaria [None]
  - Pruritus generalised [None]
  - Anaphylactic reaction [None]
  - Drug hypersensitivity [None]
  - Syncope [None]
